FAERS Safety Report 24338489 (Version 1)
Quarter: 2024Q3

REPORT INFORMATION
  Report Type: Spontaneous
  Country: US (occurrence: US)
  Receive Date: 20240919
  Receipt Date: 20240919
  Transmission Date: 20241016
  Serious: Yes (Death, Other)
  Sender: BRISTOL MYERS SQUIBB
  Company Number: US-BRISTOL-MYERS SQUIBB COMPANY-2024-147386

PATIENT
  Age: 49 Year
  Sex: Female

DRUGS (2)
  1. SPRYCEL [Suspect]
     Active Substance: DASATINIB
     Indication: Acute lymphocytic leukaemia
     Route: 048
     Dates: start: 202205
  2. SPRYCEL [Suspect]
     Active Substance: DASATINIB
     Indication: Bone marrow transplant

REACTIONS (1)
  - Death [Fatal]

NARRATIVE: CASE EVENT DATE: 20240911
